FAERS Safety Report 9273767 (Version 2)
Quarter: 2013Q2

REPORT INFORMATION
  Report Type: Spontaneous
  Country: US (occurrence: US)
  Receive Date: 20130506
  Receipt Date: 20130515
  Transmission Date: 20140414
  Serious: Yes (Other)
  Sender: FDA-Public Use
  Company Number: US-AMGEN-USASP2013026070

PATIENT
  Age: 62 Year
  Sex: Female
  Weight: 55.1 kg

DRUGS (6)
  1. ENBREL [Suspect]
     Indication: RHEUMATOID ARTHRITIS
     Dosage: 50 MG, QWK
     Route: 058
     Dates: start: 201204
  2. ARAVA [Concomitant]
     Indication: RHEUMATOID ARTHRITIS
     Dosage: 10 MG, QD
  3. LOSARTAN [Concomitant]
     Dosage: 50 MG, QD
  4. HYDROCHLOROTHIAZIDE [Concomitant]
     Dosage: 25 MG, QD
  5. SYMBICORT [Concomitant]
     Dosage: 160 MCG-4.5 MCG/INH AEROSOL WITH ADAPTER 2 PUFFS, QD
  6. PLAQUENIL [Concomitant]
     Dosage: 200 MG, BID
     Route: 048

REACTIONS (13)
  - Sjogren^s syndrome [Unknown]
  - Blood count abnormal [Not Recovered/Not Resolved]
  - Dysgeusia [Not Recovered/Not Resolved]
  - Injection site scar [Not Recovered/Not Resolved]
  - Local swelling [Unknown]
  - Joint swelling [Unknown]
  - Pain [Unknown]
  - Rheumatoid arthritis [Unknown]
  - Synovitis [Unknown]
  - Arthralgia [Unknown]
  - Pulmonary fibrosis [Unknown]
  - Carpal tunnel syndrome [Unknown]
  - Injection site pain [Not Recovered/Not Resolved]
